APPROVED DRUG PRODUCT: NIFEDIPINE
Active Ingredient: NIFEDIPINE
Strength: 30MG
Dosage Form/Route: TABLET, EXTENDED RELEASE;ORAL
Application: A075108 | Product #001
Applicant: PHARMOBEDIENT CONSULTING LLC
Approved: Dec 17, 1999 | RLD: No | RS: No | Type: DISCN